FAERS Safety Report 8583859 (Version 2)
Quarter: 2012Q4

REPORT INFORMATION
  Report Type: 
  Country: US (occurrence: US)
  Receive Date: 20120529
  Receipt Date: 20120906
  Transmission Date: 20130627
  Serious: Yes (Other)
  Sender: FDA-Public Use
  Company Number: US-TEVA-339793USA

PATIENT
  Sex: Female

DRUGS (1)
  1. CLARAVIS [Suspect]
     Dosage: 40 Milligram Daily;
     Route: 048
     Dates: start: 20120319, end: 20120507

REACTIONS (1)
  - Unintended pregnancy [Unknown]
